FAERS Safety Report 6394964-7 (Version None)
Quarter: 2009Q4

REPORT INFORMATION
  Report Type: 
  Country: None (occurrence: None)
  Receive Date: 20091009
  Receipt Date: 20091006
  Transmission Date: 20100525
  Serious: Yes (Other)
  Sender: FDA-Public Use
  Company Number: CA-BRISTOL-MYERS SQUIBB COMPANY-14688030

PATIENT
  Age: 49 Year
  Sex: Female

DRUGS (8)
  1. ATAZANAVIR [Suspect]
     Indication: HIV INFECTION
     Route: 048
     Dates: start: 20040401, end: 20080501
  2. FOSAMPRENAVIR CALCIUM [Concomitant]
     Dates: start: 20080509
  3. RITONAVIR [Concomitant]
     Dates: start: 20080509
  4. LAMIVUDINE [Concomitant]
     Dates: start: 19960901
  5. ATORVASTATIN [Concomitant]
     Dates: start: 20061101
  6. ABACAVIR [Concomitant]
     Dates: start: 20010801
  7. PERINDOPRIL [Concomitant]
     Dates: start: 20060301
  8. PROPYL-THIOURACIL [Concomitant]
     Dates: start: 20050901

REACTIONS (2)
  - NEPHROLITHIASIS [None]
  - RENAL FAILURE CHRONIC [None]
